FAERS Safety Report 4277558-9 (Version None)
Quarter: 2004Q1

REPORT INFORMATION
  Report Type: 
  Country: None (occurrence: None)
  Receive Date: 20040121
  Receipt Date: 20040121
  Transmission Date: 20041129
  Serious: Yes (Hospitalization)
  Sender: FDA-Public Use
  Company Number: None

PATIENT
  Age: 82 Year
  Sex: Male
  Weight: 88.5 kg

DRUGS (11)
  1. WARFARIN SODIUM [Suspect]
     Indication: ATRIAL FIBRILLATION
     Dosage: 5MG, 5MG Q PM, ORAL
     Route: 048
  2. ALENDRONATE SODIUM [Concomitant]
  3. POTASSIUM CHLORIDE [Concomitant]
  4. ENOXAPARIN SODIUM [Concomitant]
  5. ASPIRIN [Concomitant]
  6. LISINIOPRIL [Concomitant]
  7. METOPROLOL TARTRATE [Concomitant]
  8. RABEPRAZOLE NA [Concomitant]
  9. FUROSEMIDE [Concomitant]
  10. NAPROXEN [Concomitant]
  11. DEXAMETHASONE 0.1/TOBRAMYC 0.3% OPH SUSP [Concomitant]

REACTIONS (1)
  - INTERNATIONAL NORMALISED RATIO INCREASED [None]
